FAERS Safety Report 19167786 (Version 1)
Quarter: 2021Q2

REPORT INFORMATION
  Report Type: Spontaneous
  Country: FR (occurrence: FR)
  Receive Date: 20210422
  Receipt Date: 20210422
  Transmission Date: 20210717
  Serious: Yes (Hospitalization, Other)
  Sender: FDA-Public Use
  Company Number: FR-CHEPLA-C20211935

PATIENT
  Age: 62 Year
  Sex: Female

DRUGS (3)
  1. CYMEVAN [Suspect]
     Active Substance: GANCICLOVIR
     Indication: CYTOMEGALOVIRUS INFECTION REACTIVATION
     Dates: start: 202103
  2. WELLVONE [Suspect]
     Active Substance: ATOVAQUONE
     Dates: start: 202103
  3. CYMEVAN [Suspect]
     Active Substance: GANCICLOVIR
     Indication: CYTOMEGALOVIRUS INFECTION

REACTIONS (5)
  - Agitation [Unknown]
  - Fracture [Unknown]
  - Fall [Unknown]
  - Disturbance in attention [Recovered/Resolved]
  - Myelosuppression [Unknown]

NARRATIVE: CASE EVENT DATE: 202103
